FAERS Safety Report 9629757 (Version 1)
Quarter: 2013Q4

REPORT INFORMATION
  Report Type: Report from Study
  Country: CO (occurrence: CO)
  Receive Date: 20131017
  Receipt Date: 20131017
  Transmission Date: 20140711
  Serious: Yes (Hospitalization)
  Sender: FDA-Public Use
  Company Number: CO-ASTRAZENECA-2013SE74871

PATIENT
  Age: 70 Year
  Sex: Female

DRUGS (7)
  1. BRILINTA [Suspect]
     Indication: ACUTE CORONARY SYNDROME
     Route: 048
     Dates: start: 20130609
  2. CLOPIDOGREL [Concomitant]
  3. NIFEDIPINE [Concomitant]
  4. LOVASTATIN [Concomitant]
  5. METOPROLOL [Concomitant]
  6. ASA [Concomitant]
  7. FUROSEMIDE [Concomitant]

REACTIONS (1)
  - Acute myocardial infarction [Recovered/Resolved]
